FAERS Safety Report 9557886 (Version 1)
Quarter: 2013Q3

REPORT INFORMATION
  Report Type: Spontaneous
  Country: US (occurrence: US)
  Receive Date: 20130926
  Receipt Date: 20130926
  Transmission Date: 20140515
  Serious: Yes (Disabling)
  Sender: FDA-Public Use
  Company Number: US-BAYER-2013-115506

PATIENT
  Age: 53 Year
  Sex: Male

DRUGS (1)
  1. CIPRO [Suspect]
     Indication: PROSTATE INFECTION

REACTIONS (6)
  - Pain [None]
  - Tendonitis [None]
  - Neuropathy peripheral [None]
  - Adverse drug reaction [None]
  - Multiple chemical sensitivity [None]
  - Exercise tolerance decreased [None]
